FAERS Safety Report 6263412-X (Version None)
Quarter: 2009Q3

REPORT INFORMATION
  Report Type: 
  Country: None (occurrence: None)
  Receive Date: 20090710
  Receipt Date: 20090112
  Transmission Date: 20100115
  Serious: Yes (Other)
  Sender: FDA-Public Use
  Company Number: A0759472A

PATIENT
  Age: 7 Year
  Sex: Male
  Weight: 32 kg

DRUGS (4)
  1. FLOVENT [Suspect]
     Indication: ASTHMA
     Dosage: 2PUFF TWICE PER DAY
     Route: 055
     Dates: start: 20060101, end: 20081124
  2. SINGULAIR [Concomitant]
  3. ALLEGRA [Concomitant]
  4. QVAR 40 [Concomitant]
     Dosage: 80U TWICE PER DAY

REACTIONS (3)
  - ADRENAL SUPPRESSION [None]
  - BLOOD CORTISOL INCREASED [None]
  - CUSHINGOID [None]
